FAERS Safety Report 9242217 (Version 1)
Quarter: 2013Q2

REPORT INFORMATION
  Report Type: Spontaneous
  Country: US (occurrence: US)
  Receive Date: 20130419
  Receipt Date: 20130419
  Transmission Date: 20140414
  Serious: No
  Sender: FDA-Public Use
  Company Number: US-FOUGERA-2012FO001102

PATIENT
  Age: 44 Year
  Sex: Female
  Weight: 54.43 kg

DRUGS (2)
  1. CLOBETASOL PROPIONATE [Suspect]
     Indication: HYPERSENSITIVITY
     Route: 061
     Dates: start: 20120503, end: 20120506
  2. PREDNISONE [Concomitant]
     Indication: RASH
     Route: 048
     Dates: start: 20120430, end: 20120504

REACTIONS (4)
  - Vulvovaginal pruritus [Not Recovered/Not Resolved]
  - Rash [Unknown]
  - Off label use [Recovered/Resolved]
  - Pruritus [Unknown]
